FAERS Safety Report 6108427-7 (Version None)
Quarter: 2009Q1

REPORT INFORMATION
  Report Type: 
  Country: None (occurrence: None)
  Receive Date: 20090309
  Receipt Date: 20090309
  Transmission Date: 20090719
  Serious: Yes (Hospitalization, Other)
  Sender: FDA-Public Use
  Company Number: ES-PFIZER INC-2009159466

PATIENT

DRUGS (5)
  1. CADUET [Suspect]
     Dosage: 10 MG, 1X/DAY
     Route: 048
     Dates: start: 20081219, end: 20081222
  2. ALMAX [Concomitant]
     Dosage: UNK
     Route: 048
  3. AERIUS [Concomitant]
     Dosage: 5 MG, 1X/DAY
     Route: 048
  4. DAFALGAN [Concomitant]
     Dosage: 1 G, 3X/DAY
     Route: 048
  5. IDALPREM [Concomitant]
     Dosage: 1 MG, 2X/DAY
     Route: 048

REACTIONS (1)
  - GENERALISED OEDEMA [None]
